FAERS Safety Report 4721417-1 (Version None)
Quarter: 2005Q3

REPORT INFORMATION
  Report Type: 
  Country: None (occurrence: None)
  Receive Date: 20050721
  Receipt Date: 20040818
  Transmission Date: 20060218
  Serious: Yes (Disabling)
  Sender: FDA-Public Use
  Company Number: US-BRISTOL-MYERS SQUIBB COMPANY-12675013

PATIENT
  Age: 86 Year
  Sex: Female

DRUGS (5)
  1. COUMADIN [Suspect]
  2. PRINIVIL [Suspect]
     Route: 048
  3. NORVASC [Suspect]
  4. LOPRESSOR [Suspect]
  5. LASIX [Suspect]

REACTIONS (2)
  - ASTHENIA [None]
  - FATIGUE [None]
